FAERS Safety Report 7766675-4 (Version None)
Quarter: 2011Q3

REPORT INFORMATION
  Report Type: 
  Country: None (occurrence: None)
  Receive Date: 20110922
  Receipt Date: 20110909
  Transmission Date: 20111222
  Serious: Yes (Other)
  Sender: FDA-Public Use
  Company Number: FR-JNJFOC-20110907707

PATIENT
  Age: 71 Year
  Sex: Male

DRUGS (2)
  1. ACETAMINOPHEN AND TRAMADOL HCL [Suspect]
     Indication: RIB FRACTURE
     Dosage: 325 37.5 MG/DAY
     Route: 048
     Dates: start: 20110822, end: 20110826
  2. IBUPROFEN [Concomitant]
     Route: 065

REACTIONS (9)
  - WITHDRAWAL SYNDROME [None]
  - DELUSION [None]
  - TREMOR [None]
  - FATIGUE [None]
  - HALLUCINATION [None]
  - HEADACHE [None]
  - SLEEP DISORDER [None]
  - DECREASED APPETITE [None]
  - SOMNOLENCE [None]
